FAERS Safety Report 24386087 (Version 1)
Quarter: 2024Q4

REPORT INFORMATION
  Report Type: Spontaneous
  Country: US (occurrence: US)
  Receive Date: 20241001
  Receipt Date: 20241001
  Transmission Date: 20250114
  Serious: Yes (Other)
  Sender: PFIZER
  Company Number: US-SEATTLE GENETICS-2019SGN03156

PATIENT

DRUGS (4)
  1. ADCETRIS [Suspect]
     Active Substance: BRENTUXIMAB VEDOTIN
     Dosage: UNK, CYCLIC
  2. DOXORUBICIN HYDROCHLORIDE [Suspect]
     Active Substance: DOXORUBICIN HYDROCHLORIDE
     Dosage: UNK UNK, CYCLIC
  3. DACARBAZINE [Suspect]
     Active Substance: DACARBAZINE
     Dosage: UNK, CYCLIC
  4. VINBLASTINE [Suspect]
     Active Substance: VINBLASTINE
     Dosage: UNK UNK, CYCLIC

REACTIONS (1)
  - Neuropathy peripheral [Recovering/Resolving]
